FAERS Safety Report 10179144 (Version 1)
Quarter: 2014Q2

REPORT INFORMATION
  Report Type: Spontaneous
  Country: GR (occurrence: GR)
  Receive Date: 20140519
  Receipt Date: 20140519
  Transmission Date: 20141212
  Serious: Yes (Other)
  Sender: FDA-Public Use
  Company Number: PHHY2014GR057795

PATIENT
  Age: 73 Year
  Sex: Male

DRUGS (4)
  1. BETAMETHASONE [Suspect]
     Indication: PSORIASIS
     Dosage: 250 G MONTHLY OF EACH CREAM
  2. BUDESONIDE [Suspect]
     Indication: PSORIASIS
     Dosage: 400 G, MONTHLY
  3. CLOBETASOL [Suspect]
     Indication: PSORIASIS
     Dosage: 250 G, MONTHLY
  4. PANTHENOL [Concomitant]
     Indication: PSORIASIS
     Dosage: ONCE DAILY FOR A MONTH

REACTIONS (6)
  - Kaposi^s sarcoma [Recovering/Resolving]
  - Human herpesvirus 8 infection [Recovering/Resolving]
  - Rash papular [Recovering/Resolving]
  - Pulmonary mass [Recovering/Resolving]
  - Skin lesion [Recovering/Resolving]
  - Lymphoedema [Recovering/Resolving]
